FAERS Safety Report 18615014 (Version 2)
Quarter: 2021Q2

REPORT INFORMATION
  Report Type: Report from Study
  Country: US (occurrence: US)
  Receive Date: 20201214
  Receipt Date: 20210426
  Transmission Date: 20210717
  Serious: Yes (Hospitalization)
  Sender: FDA-Public Use
  Company Number: US-TAKEDA-US202008815

PATIENT
  Age: 54 Year
  Sex: Female

DRUGS (1)
  1. CUVITRU [Suspect]
     Active Substance: HUMAN IMMUNOGLOBULIN G
     Indication: PRIMARY IMMUNODEFICIENCY SYNDROME
     Dosage: UNK
     Route: 058

REACTIONS (7)
  - Feeling abnormal [Unknown]
  - Blood immunoglobulin G decreased [Unknown]
  - Breast procedural complication [Unknown]
  - Urinary tract infection [Unknown]
  - Fatigue [Unknown]
  - Inappropriate schedule of product administration [Unknown]
  - Needle issue [Unknown]

NARRATIVE: CASE EVENT DATE: 20200131
